FAERS Safety Report 12084045 (Version 2)
Quarter: 2016Q1

REPORT INFORMATION
  Report Type: Report from Study
  Country: DE (occurrence: DE)
  Receive Date: 20160217
  Receipt Date: 20160222
  Transmission Date: 20160526
  Serious: Yes (Death, Life-Threatening, Hospitalization)
  Sender: FDA-Public Use
  Company Number: PHHY2016DE020083

PATIENT
  Sex: Female
  Weight: 63.8 kg

DRUGS (5)
  1. EXEMESTANE. [Concomitant]
     Active Substance: EXEMESTANE
     Indication: BREAST CANCER METASTATIC
     Dosage: 25 MG, QD
     Route: 048
     Dates: start: 20160119
  2. VERGENTAN [Concomitant]
     Indication: PRODUCT USED FOR UNKNOWN INDICATION
     Dosage: 50 MG, TID
     Route: 065
     Dates: start: 20090915
  3. TRIAMTERENE. [Concomitant]
     Active Substance: TRIAMTERENE
     Indication: PRODUCT USED FOR UNKNOWN INDICATION
     Dosage: 50 MG, AS REQUIRED (PRN)
     Route: 065
     Dates: start: 20130429
  4. IBUPROFEN. [Concomitant]
     Active Substance: IBUPROFEN
     Indication: PRODUCT USED FOR UNKNOWN INDICATION
     Dosage: 600 MG,  AS REQUIRED (PRN)
     Route: 065
     Dates: start: 20150202
  5. AFINITOR [Suspect]
     Active Substance: EVEROLIMUS
     Indication: BREAST CANCER METASTATIC
     Dosage: 5 MG, QD
     Route: 048
     Dates: start: 20160119, end: 20160213

REACTIONS (5)
  - Intraventricular haemorrhage [Fatal]
  - Acute abdomen [Unknown]
  - Acute kidney injury [Unknown]
  - Cerebral haemorrhage [Fatal]
  - Cholangitis [Unknown]

NARRATIVE: CASE EVENT DATE: 20160212
